FAERS Safety Report 5302047-X (Version None)
Quarter: 2007Q2

REPORT INFORMATION
  Report Type: 
  Country: None (occurrence: None)
  Receive Date: 20070416
  Receipt Date: 20070416
  Transmission Date: 20071010
  Serious: No
  Sender: FDA-Public Use
  Company Number: None

PATIENT
  Age: 45 Year
  Sex: Male
  Weight: 88.4514 kg

DRUGS (2)
  1. AMIODARONE HCL [Suspect]
     Indication: ATRIAL FIBRILLATION
     Dosage: 400 TWICE DAILY PO
     Route: 048
  2. AMIODARONE HCL [Suspect]
     Indication: POST PROCEDURAL COMPLICATION
     Dosage: 400 TWICE DAILY PO
     Route: 048

REACTIONS (15)
  - ABDOMINAL DISCOMFORT [None]
  - ABDOMINAL PAIN [None]
  - ANOREXIA [None]
  - CHEST PAIN [None]
  - DISORIENTATION [None]
  - DYSPNOEA [None]
  - FATIGUE [None]
  - FEELING JITTERY [None]
  - MUSCLE TWITCHING [None]
  - NAUSEA [None]
  - PARAESTHESIA [None]
  - POLLAKIURIA [None]
  - TEMPERATURE INTOLERANCE [None]
  - URINE FLOW DECREASED [None]
  - URINE OUTPUT INCREASED [None]
